FAERS Safety Report 4875800-4 (Version None)
Quarter: 2006Q1

REPORT INFORMATION
  Report Type: 
  Country: None (occurrence: None)
  Receive Date: 20060106
  Receipt Date: 20051228
  Transmission Date: 20060701
  Serious: Yes (Death)
  Sender: FDA-Public Use
  Company Number: 163-20785-05090283

PATIENT
  Age: 75 Year
  Sex: Male

DRUGS (2)
  1. THALOMID [Suspect]
     Indication: MULTIPLE MYELOMA
     Dosage: 50 MG QHS ORAL
     Route: 048
     Dates: start: 20050805, end: 20050819
  2. AREDIA [Concomitant]

REACTIONS (4)
  - HIP FRACTURE [None]
  - OSTEOGENESIS IMPERFECTA [None]
  - PROCEDURAL COMPLICATION [None]
  - RENAL FAILURE [None]
